FAERS Safety Report 5128543-6 (Version None)
Quarter: 2006Q4

REPORT INFORMATION
  Report Type: 
  Country: None (occurrence: None)
  Receive Date: 20061011
  Receipt Date: 20060925
  Transmission Date: 20070319
  Serious: Yes (Other)
  Sender: FDA-Public Use
  Company Number: CHPA2006US07715

PATIENT
  Age: 57 Year
  Sex: Female
  Weight: 99.3 kg

DRUGS (7)
  1. NICOTINE [Suspect]
     Indication: SMOKING CESSATION THERAPY
     Dosage: 21 MG, QD, TRANSDERMAL
     Route: 062
     Dates: start: 20060726
  2. NICOTINE [Suspect]
     Dosage: 1 PATCH DAILY DURING DAYTIME, TRANSDERMAL; SEE IMAGE
     Route: 062
     Dates: start: 20060918, end: 20060918
  3. NICOTINE [Suspect]
     Dosage: 1 PATCH DAILY DURING DAYTIME, TRANSDERMAL; SEE IMAGE
     Route: 062
     Dates: start: 20060910
  4. TEMAZEPAM ^WYETH^ (TEMAZEPAM) [Concomitant]
  5. SEROQUEL [Concomitant]
  6. TRILEPTAL [Concomitant]
  7. TOPAMAX [Concomitant]

REACTIONS (28)
  - ABNORMAL DREAMS [None]
  - ANGER [None]
  - ANXIETY [None]
  - APPLICATION SITE DERMATITIS [None]
  - CHEST PAIN [None]
  - CONDITION AGGRAVATED [None]
  - COUGH [None]
  - CRYING [None]
  - DEPRESSED MOOD [None]
  - DEPRESSION [None]
  - DISSOCIATION [None]
  - DIZZINESS [None]
  - DYSPEPSIA [None]
  - DYSPNOEA [None]
  - FATIGUE [None]
  - HALLUCINATION [None]
  - HYPOAESTHESIA [None]
  - INTERVERTEBRAL DISC PROTRUSION [None]
  - IRRITABILITY [None]
  - NICOTINE DEPENDENCE [None]
  - PAIN IN EXTREMITY [None]
  - RASH ERYTHEMATOUS [None]
  - RASH PAPULAR [None]
  - SLEEP DISORDER [None]
  - STRESS [None]
  - TREATMENT NONCOMPLIANCE [None]
  - TREMOR [None]
  - WRONG TECHNIQUE IN DRUG USAGE PROCESS [None]
